FAERS Safety Report 20102490 (Version 1)
Quarter: 2021Q4

REPORT INFORMATION
  Report Type: Report from Study
  Country: US (occurrence: US)
  Receive Date: 20211123
  Receipt Date: 20211123
  Transmission Date: 20220303
  Serious: Yes (Other)
  Sender: FDA-Public Use
  Company Number: US-AMGEN-USASL2021181268

PATIENT
  Age: 20 Year
  Sex: Female

DRUGS (1)
  1. AIMOVIG [Suspect]
     Active Substance: ERENUMAB-AOOE
     Indication: Migraine prophylaxis
     Dosage: 140 MILLIGRAM
     Route: 065
     Dates: start: 20211101

REACTIONS (8)
  - Hallucination, auditory [Unknown]
  - Anxiety [Unknown]
  - Blood pressure abnormal [Unknown]
  - Constipation [Unknown]
  - Nightmare [Unknown]
  - Tinnitus [Recovering/Resolving]
  - Alopecia [Recovering/Resolving]
  - Palpitations [Unknown]

NARRATIVE: CASE EVENT DATE: 20211101
